FAERS Safety Report 9805937 (Version 2)
Quarter: 2014Q1

REPORT INFORMATION
  Report Type: Spontaneous
  Country: US (occurrence: US)
  Receive Date: 20140109
  Receipt Date: 20140310
  Transmission Date: 20141002
  Serious: Yes (Other)
  Sender: FDA-Public Use
  Company Number: PHEH2014US000621

PATIENT
  Sex: Male

DRUGS (7)
  1. FOCALIN XR [Suspect]
     Indication: ATTENTION DEFICIT/HYPERACTIVITY DISORDER
     Dosage: 20 MG, UNK
     Route: 048
  2. FOCALIN XR [Suspect]
     Dosage: 25 MG, UNK
     Route: 048
  3. FOCALIN XR [Suspect]
     Dosage: 30 MG, UNK
     Route: 048
  4. FOCALIN XR [Suspect]
     Dosage: 35 MG, UNK
     Route: 048
  5. FOCALIN XR [Suspect]
     Dosage: 30 MG, UNK
     Route: 048
     Dates: start: 20111125
  6. FOCALIN [Concomitant]
     Dosage: 5 MG AT MIDDAY
     Route: 048
  7. MELATONIN [Concomitant]
     Dosage: UNK UKN, UNK

REACTIONS (2)
  - Weight increased [Unknown]
  - Nervousness [Unknown]
